FAERS Safety Report 11092579 (Version 1)
Quarter: 2015Q2

REPORT INFORMATION
  Report Type: Spontaneous
  Country: RU (occurrence: None)
  Receive Date: 20150504
  Receipt Date: 20150504
  Transmission Date: 20150821
  Serious: Yes (Hospitalization, Other)
  Sender: FDA-Public Use
  Company Number: RU2015GSK054554

PATIENT
  Sex: Female

DRUGS (5)
  1. ABACAVIR (ABACAVIR SULPHATE) UNKNOWN [Suspect]
     Active Substance: ABACAVIR
     Indication: HIV INFECTION
  2. STOCRIN (EFAVIRENZ) [Suspect]
     Active Substance: EFAVIRENZ
     Indication: HIV INFECTION
  3. KALETRA [Suspect]
     Active Substance: LOPINAVIR\RITONAVIR
     Indication: HIV INFECTION
     Dates: start: 2009, end: 20150405
  4. LAMIVUDINE (LAMIVUDINE) UNKNOWN [Suspect]
     Active Substance: LAMIVUDINE
     Indication: HIV INFECTION
     Dates: start: 20150407
  5. COMBIVIR [Suspect]
     Active Substance: LAMIVUDINE\ZIDOVUDINE
     Indication: HIV INFECTION
     Dates: start: 2009, end: 20150405

REACTIONS (17)
  - Diarrhoea [None]
  - Pregnancy [None]
  - Insomnia [None]
  - Exposure during pregnancy [None]
  - Haemoglobin decreased [None]
  - Caesarean section [None]
  - Jaundice [None]
  - Nausea [None]
  - Abnormal dreams [None]
  - Dizziness [None]
  - Viral load increased [None]
  - Premature delivery [None]
  - Memory impairment [None]
  - Lipodystrophy acquired [None]
  - Hepatic cirrhosis [None]
  - Toxic skin eruption [None]
  - Platelet count decreased [None]

NARRATIVE: CASE EVENT DATE: 2009
